FAERS Safety Report 21527412 (Version 1)
Quarter: 2022Q4

REPORT INFORMATION
  Report Type: Spontaneous
  Country: US (occurrence: US)
  Receive Date: 20221031
  Receipt Date: 20221031
  Transmission Date: 20230113
  Serious: No
  Sender: FDA-Public Use
  Company Number: US-BAYER-2022A136057

PATIENT
  Age: 89 Year
  Sex: Male

DRUGS (1)
  1. MIRALAX [Suspect]
     Active Substance: POLYETHYLENE GLYCOL 3350
     Indication: Surgery
     Dosage: ONE OR TWICE IN A DAY
     Route: 048
     Dates: start: 201908

REACTIONS (4)
  - Off label use [None]
  - Product closure removal difficult [Recovered/Resolved]
  - Erythema [Recovered/Resolved]
  - Skin pressure mark [Recovered/Resolved]

NARRATIVE: CASE EVENT DATE: 20190101
